FAERS Safety Report 11936536 (Version 1)
Quarter: 2016Q1

REPORT INFORMATION
  Report Type: Spontaneous
  Country: US (occurrence: US)
  Receive Date: 20160121
  Receipt Date: 20160121
  Transmission Date: 20160526
  Serious: No
  Sender: FDA-Public Use
  Company Number: US-009507513-1601USA006933

PATIENT
  Age: 48 Year
  Sex: Male

DRUGS (7)
  1. OMEGA-3 MARINE TRIGLYCERIDES [Concomitant]
     Active Substance: FISH OIL
  2. NIACIN. [Concomitant]
     Active Substance: NIACIN
  3. CYANOCOBALAMIN. [Concomitant]
     Active Substance: CYANOCOBALAMIN
  4. TYLENOL [Concomitant]
     Active Substance: ACETAMINOPHEN
  5. INTRON A [Suspect]
     Active Substance: INTERFERON ALFA-2B
     Indication: MYCOSIS FUNGOIDES
     Dosage: 1.5 MILLION UNITS, THREE TIMES A WEEK
     Route: 058
  6. INTRON A [Suspect]
     Active Substance: INTERFERON ALFA-2B
     Indication: NON-HODGKIN^S LYMPHOMA
  7. CALCIUM (UNSPECIFIED) [Concomitant]
     Active Substance: CALCIUM

REACTIONS (2)
  - Product use issue [Unknown]
  - Skin exfoliation [Unknown]
